FAERS Safety Report 7080358-8 (Version None)
Quarter: 2010Q4

REPORT INFORMATION
  Report Type: 
  Country: None (occurrence: None)
  Receive Date: 20101103
  Receipt Date: 20101027
  Transmission Date: 20110411
  Serious: Yes (Death)
  Sender: FDA-Public Use
  Company Number: US-JNJFOC-20080101871

PATIENT
  Age: 50 Year
  Sex: Female

DRUGS (6)
  1. OXYCODONE HCL AND ACETAMINOPHEN [Suspect]
     Indication: ILL-DEFINED DISORDER
     Route: 065
  2. IBUPROFEN [Suspect]
     Indication: ILL-DEFINED DISORDER
     Route: 065
  3. QUETIAPINE [Suspect]
     Indication: ILL-DEFINED DISORDER
     Route: 065
  4. DIAZEPAM [Suspect]
     Indication: ILL-DEFINED DISORDER
     Route: 065
  5. VENLAFAXINE [Suspect]
     Indication: ILL-DEFINED DISORDER
     Route: 065
  6. HYDROCHLOROTHIAZIDE [Suspect]
     Indication: ILL-DEFINED DISORDER
     Route: 065

REACTIONS (1)
  - DRUG TOXICITY [None]
